FAERS Safety Report 21552804 (Version 1)
Quarter: 2022Q4

REPORT INFORMATION
  Report Type: Spontaneous
  Country: GE (occurrence: US)
  Receive Date: 20221104
  Receipt Date: 20221104
  Transmission Date: 20230113
  Serious: Yes (Hospitalization, Other)
  Sender: FDA-Public Use
  Company Number: GE-ALKEM LABORATORIES LIMITED-US-ALKEM-2022-11392

PATIENT
  Age: 12 Year
  Sex: Female

DRUGS (1)
  1. MINOCYCLINE [Suspect]
     Active Substance: MINOCYCLINE HYDROCHLORIDE
     Indication: Acne
     Dosage: UNK
     Route: 048

REACTIONS (5)
  - Intracranial pressure increased [Unknown]
  - Blindness [Unknown]
  - Papilloedema [Unknown]
  - Retinal exudates [Unknown]
  - Optic disc haemorrhage [Recovered/Resolved]
